FAERS Safety Report 22333450 (Version 1)
Quarter: 2023Q2

REPORT INFORMATION
  Report Type: Spontaneous
  Country: US (occurrence: None)
  Receive Date: 20230516
  Receipt Date: 20230516
  Transmission Date: 20230722
  Serious: Yes (Life-Threatening, Hospitalization, Disabling, Other)
  Sender: FDA-Public Use
  Company Number: None

PATIENT
  Age: 49 Year
  Sex: Female
  Weight: 66.68 kg

DRUGS (12)
  1. GLIPIZIDE [Suspect]
     Active Substance: GLIPIZIDE
  2. METFORMIN [Suspect]
     Active Substance: METFORMIN HYDROCHLORIDE
  3. INVEGA [Suspect]
     Active Substance: PALIPERIDONE
  4. RISPERDAL [Suspect]
     Active Substance: RISPERIDONE
  5. BACTRIM [Suspect]
     Active Substance: SULFAMETHOXAZOLE\TRIMETHOPRIM
  6. DOCUSATE SODIUM [Concomitant]
     Active Substance: DOCUSATE SODIUM
  7. SENNA [Concomitant]
     Active Substance: SENNA LEAF\SENNOSIDES\SENNOSIDES A AND B
  8. VITAMIN D3 [Concomitant]
     Active Substance: CHOLECALCIFEROL
  9. CALCIUM [Concomitant]
     Active Substance: CALCIUM
  10. ERGOCALCIFEROL [Concomitant]
     Active Substance: ERGOCALCIFEROL
  11. MELOXICAM [Concomitant]
     Active Substance: MELOXICAM
  12. VITAMIN B12 [Concomitant]
     Active Substance: CYANOCOBALAMIN

REACTIONS (43)
  - Thyroid mass [None]
  - Cyst [None]
  - Gastrooesophageal reflux disease [None]
  - Tinnitus [None]
  - Ear pain [None]
  - Menstruation irregular [None]
  - Dysmenorrhoea [None]
  - Eye pain [None]
  - Photophobia [None]
  - Phlebolith [None]
  - Phlebitis [None]
  - Hypertension [None]
  - Hypotension [None]
  - Blood pressure orthostatic [None]
  - Temporomandibular joint syndrome [None]
  - Tardive dyskinesia [None]
  - Cardiac murmur [None]
  - Palpitations [None]
  - Chest pain [None]
  - Drooling [None]
  - Dysarthria [None]
  - Syncope [None]
  - Headache [None]
  - Paraesthesia [None]
  - Hypoaesthesia [None]
  - Dizziness [None]
  - Autonomic nervous system imbalance [None]
  - Parkinsonism [None]
  - Hepatic steatosis [None]
  - Blood cholesterol increased [None]
  - Skin exfoliation [None]
  - Diabetic neuropathy [None]
  - Restless legs syndrome [None]
  - Sciatica [None]
  - Mastitis [None]
  - Breast fibrosis [None]
  - Granuloma [None]
  - Necrosis [None]
  - Breast swelling [None]
  - Lipoma [None]
  - Incontinence [None]
  - Stress [None]
  - Urticaria [None]
